FAERS Safety Report 6622039-8 (Version None)
Quarter: 2010Q1

REPORT INFORMATION
  Report Type: 
  Country: None (occurrence: None)
  Receive Date: 20100309
  Receipt Date: 20100302
  Transmission Date: 20100710
  Serious: Yes (Hospitalization, Other)
  Sender: FDA-Public Use
  Company Number: US-ROCHE-628976

PATIENT
  Sex: Female

DRUGS (11)
  1. PEG-INTERFERON A-2A (RO 25-8310) [Suspect]
     Indication: HEPATITIS C
     Dosage: FORM: PRE-FILLED SYRINGE,
     Route: 065
     Dates: start: 20090206
  2. PEG-INTERFERON A-2A (RO 25-8310) [Suspect]
     Route: 065
     Dates: end: 20100101
  3. RIBAVIRIN [Suspect]
     Indication: HEPATITIS C
     Dosage: DIVIDED DOSES,
     Route: 065
     Dates: start: 20090206
  4. RIBAVIRIN [Suspect]
     Dosage: DIVIDED DOSES
     Route: 065
  5. KAPIDEX [Suspect]
     Indication: DRUG USE FOR UNKNOWN INDICATION
     Route: 065
     Dates: start: 20090719
  6. WELLBUTRIN [Concomitant]
  7. TRAMADOL HCL [Concomitant]
  8. SPIRONOLACTONE [Concomitant]
     Dosage: DRUG: SPIROACTONE
  9. FUROSEMIDE [Concomitant]
  10. LACTULOSE [Concomitant]
  11. CARISOPRODOL [Concomitant]

REACTIONS (20)
  - ARTHRITIS [None]
  - BLOOD POTASSIUM DECREASED [None]
  - CHEST DISCOMFORT [None]
  - DYSKINESIA [None]
  - DYSPNOEA [None]
  - ENTERITIS [None]
  - FALL [None]
  - GAIT DISTURBANCE [None]
  - GASTRITIS BACTERIAL [None]
  - HYPERAMMONAEMIA [None]
  - INSOMNIA [None]
  - MEMORY IMPAIRMENT [None]
  - NASOPHARYNGITIS [None]
  - OROPHARYNGEAL PAIN [None]
  - PANCREATIC ENZYMES INCREASED [None]
  - PYREXIA [None]
  - RASH PAPULAR [None]
  - TREMOR [None]
  - VARICES OESOPHAGEAL [None]
  - WEIGHT INCREASED [None]
